FAERS Safety Report 4376769-1 (Version None)
Quarter: 2004Q2

REPORT INFORMATION
  Report Type: 
  Country: None (occurrence: None)
  Receive Date: 20040608
  Receipt Date: 20040526
  Transmission Date: 20050107
  Serious: Yes (Hospitalization)
  Sender: FDA-Public Use
  Company Number: 2004029257

PATIENT
  Age: 12 Year
  Sex: Female

DRUGS (5)
  1. GEODON [Suspect]
     Indication: BIPOLAR DISORDER
     Dosage: 60 MG (2 IN 1 D), ORAL
     Route: 048
     Dates: start: 20040412
  2. OXCARBAZINE (OXCARBAZINE) [Suspect]
     Indication: BIPOLAR DISORDER
     Dosage: 1800 MG (3 IN 1 D), ORAL
     Route: 048
     Dates: start: 20031210
  3. ATOMOXETINE HYDROCHLORIDE (ATOMOXEITINE HYDROCHLORIDE) [Suspect]
     Indication: ATTENTION DEFICIT/HYPERACTIVITY DISORDER
     Dosage: 80 (40, 2 IN 1 D), ORAL
     Route: 048
     Dates: start: 20030306
  4. GABAPENTIN [Concomitant]
  5. QUETIAPINE FUMARATE (QUETIAPINE FUMARATE) [Concomitant]

REACTIONS (9)
  - ABDOMINAL PAIN UPPER [None]
  - ABNORMAL BEHAVIOUR [None]
  - ANTIPSYCHOTIC DRUG LEVEL BELOW THERAPEUTIC [None]
  - BIPOLAR DISORDER [None]
  - DRUG INTERACTION [None]
  - MIGRAINE [None]
  - PSYCHOTIC DISORDER [None]
  - VOMITING [None]
  - WEIGHT DECREASED [None]
